FAERS Safety Report 4535446-4 (Version None)
Quarter: 2004Q4

REPORT INFORMATION
  Report Type: 
  Country: None (occurrence: None)
  Receive Date: 20041214
  Receipt Date: 20041004
  Transmission Date: 20050328
  Serious: No
  Sender: FDA-Public Use
  Company Number: USA040979248

PATIENT
  Age: 76 Year
  Sex: Male

DRUGS (1)
  1. CIALIS [Suspect]
     Indication: SEXUAL DYSFUNCTION
     Dosage: 20 MG
     Dates: start: 20040701

REACTIONS (2)
  - DIZZINESS [None]
  - HEADACHE [None]
